FAERS Safety Report 13480482 (Version 1)
Quarter: 2017Q2

REPORT INFORMATION
  Report Type: Report from Study
  Country: US (occurrence: US)
  Receive Date: 20170425
  Receipt Date: 20170425
  Transmission Date: 20170830
  Serious: Yes (Other)
  Sender: FDA-Public Use
  Company Number: US-ELI_LILLY_AND_COMPANY-US201704008134

PATIENT
  Age: 59 Year
  Sex: Female

DRUGS (2)
  1. FORTEO [Suspect]
     Active Substance: TERIPARATIDE
     Indication: OSTEOPOROSIS
     Dosage: 20 MG, UNKNOWN
     Route: 058
     Dates: start: 20170419, end: 20170420
  2. BENADRYL [Suspect]
     Active Substance: DIPHENHYDRAMINE HYDROCHLORIDE
     Indication: HYPERSENSITIVITY
     Dosage: UNK, UNKNOWN
     Route: 065
     Dates: start: 20170419

REACTIONS (11)
  - Loss of consciousness [Unknown]
  - Hypoaesthesia oral [Unknown]
  - Hypoaesthesia eye [Unknown]
  - Palpitations [Unknown]
  - Feeling abnormal [Unknown]
  - Injection site reaction [Unknown]
  - Dizziness [Unknown]
  - Hypersensitivity [Unknown]
  - Eye pain [Unknown]
  - Peripheral coldness [Unknown]
  - Dysarthria [Unknown]

NARRATIVE: CASE EVENT DATE: 20170419
